FAERS Safety Report 5605502-8 (Version None)
Quarter: 2008Q1

REPORT INFORMATION
  Report Type: 
  Country: None (occurrence: None)
  Receive Date: 20080129
  Receipt Date: 20080114
  Transmission Date: 20080703
  Serious: Yes (Hospitalization)
  Sender: FDA-Public Use
  Company Number: US-BAYER-200812110NA

PATIENT
  Age: 68 Year
  Sex: Male

DRUGS (1)
  1. BETASERON [Suspect]
     Indication: PROGRESSIVE RELAPSING MULTIPLE SCLEROSIS
     Dosage: TOTAL DAILY DOSE: 8 MIU
     Route: 058
     Dates: start: 20021017

REACTIONS (6)
  - ASTHENIA [None]
  - CARDIAC FAILURE CONGESTIVE [None]
  - CELLULITIS [None]
  - DYSPNOEA [None]
  - INFLAMMATION [None]
  - PYREXIA [None]
